FAERS Safety Report 16640008 (Version 2)
Quarter: 2019Q3

REPORT INFORMATION
  Report Type: Report from Study
  Country: None (occurrence: CO)
  Receive Date: 20190727
  Receipt Date: 20190920
  Transmission Date: 20191004
  Serious: Yes (Other)
  Sender: FDA-Public Use
  Company Number: CO-ABBVIE-19K-036-2821912-00

PATIENT
  Age: 81 Year
  Sex: Female
  Weight: 40 kg

DRUGS (2)
  1. HUMIRA [Suspect]
     Active Substance: ADALIMUMAB
     Indication: RHEUMATOID ARTHRITIS
     Route: 058
     Dates: start: 20090105
  2. HUMIRA [Suspect]
     Active Substance: ADALIMUMAB
     Indication: RHEUMATOID ARTHRITIS
     Route: 058
     Dates: end: 20190429

REACTIONS (4)
  - Herpes virus infection [Recovering/Resolving]
  - Eye haemorrhage [Recovering/Resolving]
  - Retinal operation [Recovering/Resolving]
  - Eye infection [Recovering/Resolving]

NARRATIVE: CASE EVENT DATE: 20190525
